FAERS Safety Report 16880837 (Version 1)
Quarter: 2019Q4

REPORT INFORMATION
  Report Type: Spontaneous
  Country: US (occurrence: US)
  Receive Date: 20191003
  Receipt Date: 20191003
  Transmission Date: 20200122
  Serious: No
  Sender: FDA-Public Use
  Company Number: US-MSN LABORATORIES PRIVATE LIMITED-2075242

PATIENT
  Age: 69 Year
  Sex: Female
  Weight: 59.09 kg

DRUGS (1)
  1. PREGABALIN. [Suspect]
     Active Substance: PREGABALIN
     Indication: NERVE INJURY
     Route: 065
     Dates: start: 201908

REACTIONS (5)
  - Anxiety [Unknown]
  - Depression [Recovered/Resolved]
  - Crying [Recovered/Resolved]
  - Skin burning sensation [Recovered/Resolved]
  - Feeling abnormal [Recovered/Resolved]

NARRATIVE: CASE EVENT DATE: 201908
